FAERS Safety Report 6492803-7 (Version None)
Quarter: 2009Q4

REPORT INFORMATION
  Report Type: 
  Country: None (occurrence: None)
  Receive Date: 20091214
  Receipt Date: 20090924
  Transmission Date: 20100525
  Serious: Yes (Other)
  Sender: FDA-Public Use
  Company Number: US-BAYER-200934661NA

PATIENT
  Sex: Female

DRUGS (1)
  1. TRASYLOL [Suspect]
     Indication: CARDIAC OPERATION
     Route: 042
     Dates: start: 20040908

REACTIONS (8)
  - ANHEDONIA [None]
  - ANXIETY [None]
  - CEREBROVASCULAR ACCIDENT [None]
  - DEPRESSION [None]
  - FEAR [None]
  - INJURY [None]
  - PAIN [None]
  - UNEVALUABLE EVENT [None]
